FAERS Safety Report 7430954-0 (Version None)
Quarter: 2011Q2

REPORT INFORMATION
  Report Type: 
  Country: None (occurrence: None)
  Receive Date: 20110421
  Receipt Date: 20110413
  Transmission Date: 20111010
  Serious: Yes (Hospitalization)
  Sender: FDA-Public Use
  Company Number: PHHY2011IT31552

PATIENT
  Sex: Female

DRUGS (5)
  1. RAMIPRIL [Concomitant]
     Dosage: UNK UKN, UNK
     Route: 048
     Dates: start: 20100304, end: 20110303
  2. IPERTEN [Concomitant]
     Dosage: 20 MG, UNK
     Route: 048
     Dates: start: 20100304, end: 20110303
  3. FUROSEMIDE [Concomitant]
     Dosage: UNK UKN, UNK
     Route: 048
     Dates: start: 20100304, end: 20110303
  4. ATENOLOL [Suspect]
     Dosage: 100 MG, QD
     Route: 048
     Dates: start: 20100304, end: 20110303
  5. EUTIROX [Concomitant]
     Dosage: 75 UG, UNK
     Route: 048
     Dates: start: 20100304, end: 20110303

REACTIONS (3)
  - DYSPNOEA [None]
  - SINUS BRADYCARDIA [None]
  - EXTRASYSTOLES [None]
